FAERS Safety Report 8011550-3 (Version None)
Quarter: 2011Q4

REPORT INFORMATION
  Report Type: 
  Country: None (occurrence: None)
  Receive Date: 20111228
  Receipt Date: 20111220
  Transmission Date: 20120403
  Serious: No
  Sender: FDA-Public Use
  Company Number: US-PFIZER INC-2011272947

PATIENT
  Sex: Male

DRUGS (4)
  1. TORISEL [Suspect]
     Indication: RENAL CELL CARCINOMA
     Dosage: 25 MG, WEEKLY
     Route: 042
     Dates: start: 20110928, end: 20111116
  2. METOPROLOL [Concomitant]
     Indication: HYPERTENSION
     Dosage: 50 MG/D
  3. AMLODIPINE [Concomitant]
     Indication: HYPERTENSION
     Dosage: 10 MG/D
  4. BENAZEPRIL [Concomitant]
     Indication: HYPERTENSION
     Dosage: 20 MG, UNK

REACTIONS (5)
  - PRURITUS [None]
  - RASH MACULAR [None]
  - DISEASE PROGRESSION [None]
  - RENAL CELL CARCINOMA [None]
  - LUNG INFILTRATION [None]
